FAERS Safety Report 8455218-8 (Version None)
Quarter: 2012Q2

REPORT INFORMATION
  Report Type: 
  Country: None (occurrence: None)
  Receive Date: 20120621
  Receipt Date: 20120615
  Transmission Date: 20120825
  Serious: Yes (Death)
  Sender: FDA-Public Use
  Company Number: DE-ASTELLAS-2012EU004223

PATIENT
  Age: 30 Year
  Sex: Female

DRUGS (3)
  1. PREDNISOLONE [Suspect]
     Indication: HEART AND LUNG TRANSPLANT
     Dosage: 10 MG, UNKNOWN/D
     Route: 065
  2. TACROLIMUS [Suspect]
     Indication: HEART AND LUNG TRANSPLANT
     Dosage: 3.5 MG, UNKNOWN/D
     Route: 065
  3. AZATHIOPRINE [Suspect]
     Indication: HEART AND LUNG TRANSPLANT
     Dosage: 100 MG, UNKNOWN/D
     Route: 065

REACTIONS (2)
  - OFF LABEL USE [None]
  - POST TRANSPLANT LYMPHOPROLIFERATIVE DISORDER [None]
